FAERS Safety Report 20698807 (Version 2)
Quarter: 2022Q2

REPORT INFORMATION
  Report Type: Spontaneous
  Country: US (occurrence: US)
  Receive Date: 20220412
  Receipt Date: 20220412
  Transmission Date: 20220721
  Serious: No
  Sender: FDA-Public Use
  Company Number: US-JNJFOC-20220404952

PATIENT
  Age: 60 Year
  Sex: Female
  Weight: 79.38 kg

DRUGS (4)
  1. TYLENOL [Suspect]
     Active Substance: ACETAMINOPHEN
     Indication: Pain
     Route: 065
     Dates: start: 202112
  2. MOTRIN [Concomitant]
     Active Substance: IBUPROFEN
     Indication: Pain
     Route: 065
     Dates: start: 202203
  3. COVID-19 VACCINE [Concomitant]
     Indication: Immunisation
     Dosage: FIRST DOSE
     Route: 065
     Dates: start: 20211205
  4. COVID-19 VACCINE [Concomitant]
     Dosage: SECOND DOSE
     Route: 065

REACTIONS (1)
  - Drug ineffective [Unknown]

NARRATIVE: CASE EVENT DATE: 20211201
